FAERS Safety Report 25439711 (Version 1)
Quarter: 2025Q2

REPORT INFORMATION
  Report Type: Spontaneous
  Country: US (occurrence: None)
  Receive Date: 20250613
  Receipt Date: 20250613
  Transmission Date: 20250716
  Serious: Yes (Other)
  Sender: FDA-CTU
  Company Number: None

PATIENT
  Age: 29 Year
  Sex: Female

DRUGS (1)
  1. STELARA [Suspect]
     Active Substance: USTEKINUMAB
     Indication: Hidradenitis
     Route: 058
     Dates: start: 20250603, end: 20250603

REACTIONS (6)
  - Confusional state [None]
  - Vomiting [None]
  - Dizziness [None]
  - Anxiety [None]
  - Slow speech [None]
  - Malaise [None]

NARRATIVE: CASE EVENT DATE: 20250603
